FAERS Safety Report 25864950 (Version 1)
Quarter: 2025Q3

REPORT INFORMATION
  Report Type: Spontaneous
  Country: US (occurrence: US)
  Receive Date: 20250930
  Receipt Date: 20250930
  Transmission Date: 20251020
  Serious: No
  Sender: BAYER HEALTHCARE PHARMACEUTICALS INC.
  Company Number: US-BAYER-2025A124401

PATIENT
  Sex: Male

DRUGS (5)
  1. KERENDIA [Suspect]
     Active Substance: FINERENONE
     Indication: Chronic kidney disease
  2. METFORMIN [Concomitant]
     Active Substance: METFORMIN HYDROCHLORIDE
     Dates: start: 2000
  3. LISINOPRIL [Concomitant]
     Active Substance: LISINOPRIL
     Dates: start: 2000
  4. GLIPIZIDE [Concomitant]
     Active Substance: GLIPIZIDE
     Dates: start: 2000
  5. JARDIANCE [Concomitant]
     Active Substance: EMPAGLIFLOZIN

REACTIONS (2)
  - Dysgeusia [None]
  - Stress [None]
